FAERS Safety Report 8950546 (Version 1)
Quarter: 2012Q4

REPORT INFORMATION
  Report Type: 
  Country: AU (occurrence: AU)
  Receive Date: 20121207
  Receipt Date: 20121207
  Transmission Date: 20130627
  Serious: Yes (Hospitalization)
  Sender: FDA-Public Use
  Company Number: AU-GE HEALTHCARE MEDICAL DIAGNOSTICS-VISP-NO-1211S-0558

PATIENT
  Age: 45 Year
  Sex: Female

DRUGS (2)
  1. VISIPAQUE [Suspect]
     Indication: METASTASIS
     Route: 042
     Dates: start: 20121109, end: 20121109
  2. VISIPAQUE [Suspect]
     Indication: DIAGNOSTIC PROCEDURE

REACTIONS (2)
  - Rash [Recovered/Resolved]
  - Swelling face [Recovered/Resolved]
